FAERS Safety Report 6994524-0 (Version None)
Quarter: 2010Q3

REPORT INFORMATION
  Report Type: 
  Country: None (occurrence: None)
  Receive Date: 20100917
  Receipt Date: 20100907
  Transmission Date: 20110219
  Serious: Yes (Other)
  Sender: FDA-Public Use
  Company Number: US-JNJCH-2010020463

PATIENT
  Age: 66 Year
  Sex: Female
  Weight: 63.5 kg

DRUGS (7)
  1. LISTERINE TOTAL CARE PLUS WHITENING [Suspect]
     Indication: DENTAL CARE
     Dosage: TEXT:TWO TEASPOONFUL TWICE
     Route: 048
     Dates: start: 20100903, end: 20100904
  2. CALCIUM [Concomitant]
     Indication: MINERAL SUPPLEMENTATION
     Dosage: TEXT:ONE DAILY
     Route: 048
  3. ACETYLSALICYLIC ACID [Concomitant]
     Indication: SUPPLEMENTATION THERAPY
     Dosage: TEXT:ONE DAILY
     Route: 065
  4. COQ-10 ST [Concomitant]
     Indication: SUPPLEMENTATION THERAPY
     Dosage: TEXT:ONE DAILY
     Route: 065
  5. CENTRUM [Concomitant]
     Indication: VITAMIN SUPPLEMENTATION
     Dosage: TEXT:ONE DAILY
     Route: 065
  6. HAWTHORN [Concomitant]
     Indication: SUPPLEMENTATION THERAPY
     Dosage: TEXT:ONE DAILY
     Route: 065
  7. VYTORIN [Concomitant]
     Indication: BLOOD CHOLESTEROL INCREASED
     Route: 065

REACTIONS (2)
  - GINGIVAL BLISTER [None]
  - OROPHARYNGEAL BLISTERING [None]
